FAERS Safety Report 7108182-8 (Version None)
Quarter: 2010Q4

REPORT INFORMATION
  Report Type: 
  Country: None (occurrence: None)
  Receive Date: 20101115
  Receipt Date: 20101115
  Transmission Date: 20110411
  Serious: Yes (Life-Threatening)
  Sender: FDA-Public Use
  Company Number: None

PATIENT
  Age: 38 Year
  Sex: Female
  Weight: 104.3273 kg

DRUGS (2)
  1. TRILIPIX [Suspect]
     Indication: BLOOD CHOLESTEROL
     Dosage: 135 MG 1 DAILY
     Dates: start: 20091201, end: 20100813
  2. TRILIPIX [Suspect]
     Indication: BLOOD TRIGLYCERIDES
     Dosage: 135 MG 1 DAILY
     Dates: start: 20091201, end: 20100813

REACTIONS (4)
  - DIARRHOEA [None]
  - GASTROOESOPHAGEAL REFLUX DISEASE [None]
  - VOMITING [None]
  - WEIGHT INCREASED [None]
